FAERS Safety Report 8328825-0 (Version None)
Quarter: 2012Q2

REPORT INFORMATION
  Report Type: 
  Country: None (occurrence: None)
  Receive Date: 20120430
  Receipt Date: 20120412
  Transmission Date: 20120825
  Serious: Yes (Other)
  Sender: FDA-Public Use
  Company Number: HRA-MET20120010

PATIENT
  Age: 42 Year
  Sex: Male

DRUGS (4)
  1. MITOTANE (MITOTANE) [Suspect]
     Indication: PRODUCT USED FOR UNKNOWN INDICATION
     Dates: start: 20080101
  2. KETOCONAZOLE [Concomitant]
  3. METYRAPONE (METYRAPONE) [Suspect]
     Indication: BLOOD CORTISOL ABNORMAL
     Dates: start: 20040101
  4. HYDROCORTONE [Concomitant]

REACTIONS (7)
  - CORTISOL FREE URINE INCREASED [None]
  - BLOOD CORTICOTROPHIN INCREASED [None]
  - CONTUSION [None]
  - SKIN STRIAE [None]
  - MUSCULAR WEAKNESS [None]
  - WEIGHT INCREASED [None]
  - CUSHINGOID [None]
